FAERS Safety Report 9378358 (Version 1)
Quarter: 2013Q3

REPORT INFORMATION
  Report Type: Spontaneous
  Country: IL (occurrence: IL)
  Receive Date: 20130701
  Receipt Date: 20130701
  Transmission Date: 20140515
  Serious: Yes (Other)
  Sender: FDA-Public Use
  Company Number: IL-PFIZER INC-2013192374

PATIENT
  Age: 65 Year
  Sex: Female

DRUGS (2)
  1. CHAMPIX [Suspect]
     Dosage: UNK
  2. CIPRALEX [Concomitant]
     Indication: DEPRESSION
     Dosage: UNK

REACTIONS (4)
  - Urinary tract infection [Recovering/Resolving]
  - Somnolence [Recovering/Resolving]
  - Nervousness [Recovering/Resolving]
  - Abnormal dreams [Recovering/Resolving]
